FAERS Safety Report 7220353-9 (Version None)
Quarter: 2011Q1

REPORT INFORMATION
  Report Type: 
  Country: None (occurrence: None)
  Receive Date: 20110111
  Receipt Date: 20110105
  Transmission Date: 20110831
  Serious: Yes (Other)
  Sender: FDA-Public Use
  Company Number: JP-ABBOTT-11P-087-0695385-00

PATIENT
  Age: 5 Year
  Sex: Female

DRUGS (2)
  1. CEFZON SUSPENSION [Suspect]
     Indication: PHARYNGITIS STREPTOCOCCAL
     Route: 048
  2. SAWACILLIN [Suspect]
     Indication: PHARYNGITIS STREPTOCOCCAL
     Route: 048
     Dates: start: 20101222, end: 20101222

REACTIONS (1)
  - APRAXIA [None]
